FAERS Safety Report 5726590-4 (Version None)
Quarter: 2008Q2

REPORT INFORMATION
  Report Type: 
  Country: None (occurrence: None)
  Receive Date: 20080502
  Receipt Date: 20080422
  Transmission Date: 20081010
  Serious: Yes (Hospitalization, Other)
  Sender: FDA-Public Use
  Company Number: US-JNJFOC-20080406085

PATIENT
  Sex: Female
  Weight: 64.41 kg

DRUGS (15)
  1. FENTANYL TRANSDERMAL SYSTEM [Suspect]
     Route: 062
  2. FENTANYL TRANSDERMAL SYSTEM [Suspect]
     Indication: PAIN
     Route: 062
  3. POTASSIUM CHLORIDE [Concomitant]
     Indication: CARDIAC DISORDER
     Route: 048
  4. HYZAAR [Concomitant]
     Indication: BLOOD PRESSURE
     Dosage: 100/25MG
     Route: 048
  5. FOLIC ACID [Concomitant]
     Indication: CARDIAC DISORDER
     Route: 048
  6. DILTIAZEM [Concomitant]
     Indication: BLOOD PRESSURE
     Route: 048
  7. DILTIAZEM [Concomitant]
     Indication: CARDIAC DISORDER
     Route: 048
  8. CELEBREX [Concomitant]
     Indication: ARTHRITIS
     Route: 048
  9. LATULOSE [Concomitant]
     Indication: CONSTIPATION
     Route: 048
  10. MIRALAX [Concomitant]
     Indication: CONSTIPATION
     Route: 048
  11. ASPIRIN [Concomitant]
     Indication: CARDIOVASCULAR EVENT PROPHYLAXIS
     Route: 048
  12. ISORBID [Concomitant]
     Indication: CARDIAC DISORDER
     Route: 048
  13. OXYCODONE HCL [Concomitant]
     Indication: PAIN
     Route: 048
  14. VITAMIN D [Concomitant]
     Indication: BONE DISORDER
     Dosage: ON THURSDAY
     Route: 048
  15. AMBIEN [Concomitant]
     Indication: SLEEP DISORDER
     Route: 048

REACTIONS (9)
  - APPLICATION SITE REACTION [None]
  - ARTHRALGIA [None]
  - BURSITIS [None]
  - CYSTITIS [None]
  - DIVERTICULITIS [None]
  - DRUG ADMINISTERED AT INAPPROPRIATE SITE [None]
  - GROIN PAIN [None]
  - THERAPEUTIC RESPONSE DECREASED [None]
  - WRONG TECHNIQUE IN DRUG USAGE PROCESS [None]
